FAERS Safety Report 16050737 (Version 2)
Quarter: 2019Q2

REPORT INFORMATION
  Report Type: Spontaneous
  Country: CN (occurrence: CN)
  Receive Date: 20190308
  Receipt Date: 20190618
  Transmission Date: 20190711
  Serious: Yes (Life-Threatening, Hospitalization)
  Sender: FDA-Public Use
  Company Number: CN-SUN PHARMACEUTICAL INDUSTRIES LTD-2019R1-201232

PATIENT
  Age: 51 Year
  Sex: Female

DRUGS (1)
  1. ASPIRIN. [Suspect]
     Active Substance: ASPIRIN
     Indication: ANTICOAGULANT THERAPY
     Dosage: 200 MILLIGRAM, DAILY
     Route: 048

REACTIONS (3)
  - Gallbladder rupture [Recovered/Resolved]
  - Haematocoele [Recovered/Resolved]
  - Haemobilia [Recovered/Resolved]
